FAERS Safety Report 11537584 (Version 2)
Quarter: 2015Q4

REPORT INFORMATION
  Report Type: Spontaneous
  Country: IT (occurrence: IT)
  Receive Date: 20150922
  Receipt Date: 20151020
  Transmission Date: 20160304
  Serious: Yes (Other)
  Sender: FDA-Public Use
  Company Number: IT-JNJFOC-20150911417

PATIENT
  Age: 44 Year
  Sex: Female

DRUGS (2)
  1. HALDOL [Suspect]
     Active Substance: HALOPERIDOL
     Indication: PRODUCT USED FOR UNKNOWN INDICATION
     Route: 048
     Dates: start: 20150913, end: 20150913
  2. ZYPREXA [Concomitant]
     Active Substance: OLANZAPINE
     Indication: PRODUCT USED FOR UNKNOWN INDICATION
     Route: 065
     Dates: start: 20150913, end: 20150913

REACTIONS (4)
  - Accidental exposure to product [Unknown]
  - Lip oedema [Recovering/Resolving]
  - Oedema peripheral [Unknown]
  - Oedema mouth [Recovering/Resolving]

NARRATIVE: CASE EVENT DATE: 20150913
